FAERS Safety Report 23215459 (Version 1)
Quarter: 2023Q4

REPORT INFORMATION
  Report Type: Spontaneous
  Country: US (occurrence: US)
  Receive Date: 20231122
  Receipt Date: 20231122
  Transmission Date: 20240110
  Serious: No
  Sender: FDA-Public Use
  Company Number: US-Bion-012367

PATIENT
  Sex: Female

DRUGS (1)
  1. IBUPROFEN [Suspect]
     Active Substance: IBUPROFEN
     Indication: Osteoarthritis
     Dates: start: 20231113, end: 20231117

REACTIONS (1)
  - Abdominal discomfort [Not Recovered/Not Resolved]
